FAERS Safety Report 16608710 (Version 1)
Quarter: 2019Q3

REPORT INFORMATION
  Report Type: Report from Study
  Country: KR (occurrence: KR)
  Receive Date: 20190722
  Receipt Date: 20190722
  Transmission Date: 20191004
  Serious: Yes (Other)
  Sender: FDA-Public Use
  Company Number: KR-PFIZER INC-2019308476

PATIENT

DRUGS (2)
  1. DEXMEDETOMIDINE HYDROCHLORIDE. [Suspect]
     Active Substance: DEXMEDETOMIDINE HYDROCHLORIDE
     Indication: SEDATION
     Dosage: 35 UG (DILUTED IN 0.9% SALINE INTRAVENOUSLY OVER 10MIN)
     Route: 040
  2. KETAMINE [Suspect]
     Active Substance: KETAMINE
     Indication: SEDATION
     Dosage: 35 MG (DILUTED IN 0.9% SALINE INTRAVENOUSLY OVER 1MIN)
     Route: 040

REACTIONS (1)
  - Pneumonia aspiration [Unknown]
